FAERS Safety Report 14431718 (Version 2)
Quarter: 2018Q1

REPORT INFORMATION
  Report Type: Spontaneous
  Country: CH (occurrence: CH)
  Receive Date: 20180124
  Receipt Date: 20180208
  Transmission Date: 20180509
  Serious: Yes (Other)
  Sender: FDA-Public Use
  Company Number: CH-LPDUSPRD-20180075

PATIENT
  Age: 32 Year
  Sex: Female
  Weight: 70 kg

DRUGS (2)
  1. FERINJECT [Suspect]
     Active Substance: FERRIC CARBOXYMALTOSE
     Dosage: 1000 MG/SODIUM CHLORIDE (NACL)
     Route: 041
     Dates: start: 20161014, end: 20161014
  2. ETHINYLESTRADIOL- LEVONORGESTREL [Concomitant]
     Dosage: UNKNOWN
     Route: 048

REACTIONS (6)
  - Skin reaction [Unknown]
  - Rash macular [Unknown]
  - Ear swelling [Unknown]
  - Face oedema [Unknown]
  - Generalised erythema [Unknown]
  - Rash pruritic [Unknown]

NARRATIVE: CASE EVENT DATE: 20161014
